FAERS Safety Report 20843469 (Version 4)
Quarter: 2022Q3

REPORT INFORMATION
  Report Type: Report from Study
  Country: TR (occurrence: TR)
  Receive Date: 20220518
  Receipt Date: 20220829
  Transmission Date: 20221027
  Serious: Yes (Other)
  Sender: FDA-Public Use
  Company Number: TR-ALXN-A202205781

PATIENT
  Sex: Female
  Weight: 97 kg

DRUGS (2)
  1. SOLIRIS [Suspect]
     Active Substance: ECULIZUMAB
     Dosage: 1200 MG, Q2W
     Route: 042
  2. SOLIRIS [Suspect]
     Active Substance: ECULIZUMAB
     Indication: Myasthenia gravis
     Dosage: 900 MG, QW
     Route: 042
     Dates: start: 20211217

REACTIONS (5)
  - Respiratory distress [Unknown]
  - Asthma [Unknown]
  - Cough [Unknown]
  - Fatigue [Unknown]
  - Hypersensitivity [Unknown]
